FAERS Safety Report 23323145 (Version 1)
Quarter: 2023Q4

REPORT INFORMATION
  Report Type: Other
  Country: US (occurrence: None)
  Receive Date: 20231220
  Receipt Date: 20231220
  Transmission Date: 20240109
  Serious: No
  Sender: FDA-Public Use
  Company Number: US-ROCHE-3275779

PATIENT
  Age: 24 Year
  Sex: Female

DRUGS (2)
  1. RITUXIMAB [Suspect]
     Active Substance: RITUXIMAB
     Indication: Immune thrombocytopenia
     Route: 065
  2. CYCLOSPORINE [Suspect]
     Active Substance: CYCLOSPORINE
     Indication: Immune thrombocytopenia
     Route: 065

REACTIONS (3)
  - COVID-19 [Unknown]
  - Adenovirus infection [Unknown]
  - Parainfluenzae virus infection [Unknown]
